FAERS Safety Report 6247193-1 (Version None)
Quarter: 2009Q2

REPORT INFORMATION
  Report Type: 
  Country: None (occurrence: None)
  Receive Date: 20090626
  Receipt Date: 20090616
  Transmission Date: 20091009
  Serious: Yes (Hospitalization)
  Sender: FDA-Public Use
  Company Number: CH-PFIZER INC-2009227322

PATIENT

DRUGS (5)
  1. XANAX [Suspect]
     Dosage: 1.5 MG, UNK
     Route: 048
     Dates: start: 20090118, end: 20090118
  2. AULIN [Suspect]
     Dosage: 200 MG, UNK
     Route: 048
     Dates: start: 20090118, end: 20090118
  3. LEXOTANIL [Suspect]
     Dosage: 6 MG, UNK
     Route: 048
     Dates: start: 20090119, end: 20090119
  4. BUSCOPAN [Suspect]
     Dosage: UNK
     Route: 048
     Dates: start: 20090119, end: 20090119
  5. VOLTAREN RAPID ^NOVARTIS^ [Suspect]
     Dosage: 100 MG, UNK
     Route: 048
     Dates: start: 20090119, end: 20090119

REACTIONS (1)
  - SUICIDE ATTEMPT [None]
